FAERS Safety Report 8449841-4 (Version None)
Quarter: 2012Q2

REPORT INFORMATION
  Report Type: 
  Country: None (occurrence: None)
  Receive Date: 20120620
  Receipt Date: 20120607
  Transmission Date: 20120825
  Serious: Yes (Other)
  Sender: FDA-Public Use
  Company Number: US-ELI_LILLY_AND_COMPANY-US201206002935

PATIENT
  Age: 50 Year
  Sex: Female

DRUGS (7)
  1. WELLBUTRIN [Concomitant]
     Dosage: UNK, UNKNOWN
     Route: 065
  2. CYMBALTA [Suspect]
     Indication: DEPRESSION
     Dosage: 60 MG, QD
  3. VYVANSE [Concomitant]
     Dosage: UNK, UNKNOWN
     Route: 065
     Dates: end: 20120523
  4. NAMENDA [Concomitant]
     Dosage: UNK, UNKNOWN
     Route: 065
  5. CYMBALTA [Suspect]
     Dosage: 60 MG, BID
     Dates: end: 20120523
  6. CYMBALTA [Suspect]
     Dosage: 60 MG, QD
     Dates: start: 20120605
  7. NORTRIPTYLINE HYDROCHLORIDE [Concomitant]
     Dosage: UNK, UNKNOWN
     Route: 065
     Dates: start: 20120523

REACTIONS (21)
  - TREMOR [None]
  - HEADACHE [None]
  - HYPOAESTHESIA [None]
  - DYSPHEMIA [None]
  - GAIT DISTURBANCE [None]
  - DEPRESSION [None]
  - ABDOMINAL PAIN UPPER [None]
  - GENERAL PHYSICAL HEALTH DETERIORATION [None]
  - HYPERHIDROSIS [None]
  - DISTURBANCE IN ATTENTION [None]
  - HYPERSENSITIVITY [None]
  - ANGER [None]
  - PARAESTHESIA [None]
  - DYSPNOEA [None]
  - DYSPHAGIA [None]
  - THROAT TIGHTNESS [None]
  - INTENTIONAL DRUG MISUSE [None]
  - NAUSEA [None]
  - IRRITABILITY [None]
  - VISION BLURRED [None]
  - MEMORY IMPAIRMENT [None]
